FAERS Safety Report 9088751 (Version 1)
Quarter: 2013Q1

REPORT INFORMATION
  Report Type: Spontaneous
  Country: JP (occurrence: JP)
  Receive Date: 20130201
  Receipt Date: 20130201
  Transmission Date: 20140127
  Serious: Yes (Life-Threatening, Hospitalization, Disabling)
  Sender: FDA-Public Use
  Company Number: JP-009507513-1108USA02496

PATIENT
  Age: 70 Year
  Sex: Female
  Weight: 46 kg

DRUGS (3)
  1. JANUVIA [Suspect]
     Indication: DIABETES MELLITUS
     Dosage: 50 MG, QD
     Route: 048
     Dates: start: 20100925, end: 20110811
  2. OPALMON [Concomitant]
     Indication: SPINAL OSTEOARTHRITIS
     Dosage: 5 MICROGRAM, TID
     Route: 048
     Dates: start: 20110331
  3. MECOBAMIDE [Concomitant]
     Indication: SPINAL OSTEOARTHRITIS
     Dosage: 500 MICROGRAM, TID
     Route: 048
     Dates: start: 20110331

REACTIONS (3)
  - Seronegative arthritis [Not Recovered/Not Resolved]
  - Spinal osteoarthritis [Not Recovered/Not Resolved]
  - Rheumatic disorder [Not Recovered/Not Resolved]
